FAERS Safety Report 9026207 (Version 2)
Quarter: 2013Q1

REPORT INFORMATION
  Report Type: Spontaneous
  Country: US (occurrence: None)
  Receive Date: 20130108
  Receipt Date: 20130109
  Transmission Date: 20140127
  Serious: Yes (Other)
  Sender: FDA-Public Use
  Company Number: AUR-APL-2013-00091

PATIENT
  Age: 45 Year
  Sex: Male
  Weight: 118 kg

DRUGS (13)
  1. LISINOPRIL (LISINOPRIL) [Suspect]
     Indication: BLOOD PRESSURE ABNORMAL
  2. VIAGRA [Suspect]
     Indication: ERECTILE DYSFUNCTION
     Route: 048
  3. VIAGRA [Suspect]
     Indication: EJACULATION DISORDER
     Route: 048
  4. ADDERALL [Suspect]
     Indication: SUBSTANCE-INDUCED MOOD DISORDER
  5. TOPROL XL [Suspect]
     Indication: BLOOD PRESSURE ABNORMAL
  6. INSULIN (INSULIN) [Suspect]
     Indication: BLOOD GLUCOSE INCREASED
     Dates: start: 20121225
  7. LORTAB [Concomitant]
  8. LITHIUM [Concomitant]
  9. TRAZODONE [Concomitant]
  10. PROZAC [Concomitant]
  11. GLYBURIDE [Concomitant]
  12. LIPITOR [Concomitant]
  13. PROCARDIA [Concomitant]

REACTIONS (13)
  - Drug interaction [None]
  - Headache [None]
  - Hypotension [None]
  - Dry mouth [None]
  - Testicular pain [None]
  - Flushing [None]
  - Fatigue [None]
  - Erection increased [None]
  - Ejaculation failure [None]
  - Penile pain [None]
  - Penis disorder [None]
  - Skin discolouration [None]
  - Asthenia [None]
